FAERS Safety Report 21605363 (Version 2)
Quarter: 2022Q4

REPORT INFORMATION
  Report Type: Spontaneous
  Country: RU (occurrence: None)
  Receive Date: 20221116
  Receipt Date: 20221130
  Transmission Date: 20230112
  Serious: Yes (Hospitalization, Other)
  Sender: FDA-Public Use
  Company Number: RU-ROCHE-3217996

PATIENT
  Sex: Female
  Weight: 96 kg

DRUGS (3)
  1. TRASTUZUMAB [Suspect]
     Active Substance: TRASTUZUMAB
     Indication: Breast cancer
     Dosage: 720/540
     Route: 041
     Dates: start: 20220921
  2. PERTUZUMAB [Suspect]
     Active Substance: PERTUZUMAB
     Indication: Breast cancer
     Dosage: 840/420
     Route: 065
  3. DOCETAXEL [Suspect]
     Active Substance: DOCETAXEL
     Indication: Breast cancer
     Route: 065

REACTIONS (18)
  - Pyelonephritis chronic [Unknown]
  - Renal hypoplasia [Unknown]
  - Chronic kidney disease [Unknown]
  - Cholecystitis chronic [Unknown]
  - Pulmonary hypertension [Unknown]
  - Cardiac failure chronic [Unknown]
  - Pulmonary congestion [Unknown]
  - Calculus urinary [Unknown]
  - Obesity [Unknown]
  - Varicose vein [Unknown]
  - Peripheral venous disease [Unknown]
  - Cardiac contractility decreased [Unknown]
  - Left ventricular hypertrophy [Unknown]
  - Cardiomegaly [Unknown]
  - Pleural effusion [Unknown]
  - Bronchitis chronic [Unknown]
  - Fracture displacement [Unknown]
  - Abdominal pain upper [Unknown]
